FAERS Safety Report 8836340 (Version 1)
Quarter: 2012Q4

REPORT INFORMATION
  Report Type: Report from Study
  Country: US (occurrence: US)
  Receive Date: 20121011
  Receipt Date: 20121011
  Transmission Date: 20130627
  Serious: Yes (Other)
  Sender: FDA-Public Use
  Company Number: US-US-EMD SERONO, INC.-7166118

PATIENT
  Sex: Male

DRUGS (1)
  1. REBIF [Suspect]
     Indication: PRODUCT USED FOR UNKNOWN INDICATION
     Route: 058
     Dates: start: 20100322

REACTIONS (6)
  - Pancreas transplant [Not Recovered/Not Resolved]
  - Diabetic retinopathy [Unknown]
  - Injection site scar [Not Recovered/Not Resolved]
  - Injection site atrophy [Not Recovered/Not Resolved]
  - Injection site necrosis [Not Recovered/Not Resolved]
  - Injection site induration [Not Recovered/Not Resolved]
